FAERS Safety Report 6713001-5 (Version None)
Quarter: 2010Q2

REPORT INFORMATION
  Report Type: 
  Country: None (occurrence: None)
  Receive Date: 20100505
  Receipt Date: 20100505
  Transmission Date: 20101027
  Serious: No
  Sender: FDA-Public Use
  Company Number: None

PATIENT
  Age: 59 Year
  Sex: Male

DRUGS (1)
  1. LEXISCAN [Suspect]
     Indication: CARDIAC FAILURE CONGESTIVE
     Dates: start: 20100503, end: 20100503

REACTIONS (3)
  - PRURITUS [None]
  - RASH PAPULAR [None]
  - URTICARIA [None]
